FAERS Safety Report 22924955 (Version 2)
Quarter: 2023Q4

REPORT INFORMATION
  Report Type: Spontaneous
  Country: GB (occurrence: GB)
  Receive Date: 20230908
  Receipt Date: 20231026
  Transmission Date: 20240109
  Serious: Yes (Hospitalization)
  Sender: FDA-Public Use
  Company Number: GB-Accord-376566

PATIENT
  Age: 71 Year
  Sex: Female
  Weight: 50.6 kg

DRUGS (3)
  1. CARBOPLATIN [Suspect]
     Active Substance: CARBOPLATIN
     Indication: Anal cancer
     Dosage: INTRAVENOUS, AUC 5 ON DAY 1 OF EACH CYCLE OF 6 CYCLE
     Route: 042
     Dates: start: 20220304, end: 20220805
  2. PACLITAXEL [Suspect]
     Active Substance: PACLITAXEL
     Dosage: INTRAVENOUS, ON DAY 1, 8 AND 15 FOR 6 CYCLE
     Route: 042
     Dates: start: 20220304, end: 20220812
  3. TRIMETHOPRIM [Suspect]
     Active Substance: TRIMETHOPRIM
     Indication: Urinary tract infection
     Dosage: UNK
     Dates: start: 20230509, end: 20230515

REACTIONS (2)
  - Rash maculo-papular [Recovered/Resolved]
  - Urinary tract infection [Unknown]

NARRATIVE: CASE EVENT DATE: 20230519
